FAERS Safety Report 24696514 (Version 2)
Quarter: 2024Q4

REPORT INFORMATION
  Report Type: Spontaneous
  Country: US (occurrence: US)
  Receive Date: 20241204
  Receipt Date: 20241211
  Transmission Date: 20250115
  Serious: Yes (Other)
  Sender: BAUSCH AND LOMB
  Company Number: US-BAUSCH-BL-2024-017416

PATIENT
  Sex: Female

DRUGS (1)
  1. DIAZEPAM [Suspect]
     Active Substance: DIAZEPAM
     Indication: Proctalgia
     Route: 054

REACTIONS (8)
  - Dialysis [Unknown]
  - Device leakage [Unknown]
  - Device breakage [Unknown]
  - Pain [Not Recovered/Not Resolved]
  - Product use issue [Unknown]
  - Off label use [Unknown]
  - Product availability issue [Unknown]
  - Product temperature excursion issue [Unknown]

NARRATIVE: CASE EVENT DATE: 20241101
